FAERS Safety Report 5012191-2 (Version None)
Quarter: 2006Q2

REPORT INFORMATION
  Report Type: 
  Country: None (occurrence: None)
  Receive Date: 20060406
  Receipt Date: 20060112
  Transmission Date: 20061013
  Serious: Yes (Other)
  Sender: FDA-Public Use
  Company Number: SUS1-2006-00055

PATIENT
  Age: 40 Year
  Sex: Female
  Weight: 81.2 kg

DRUGS (1)
  1. EQUETRO [Suspect]
     Indication: MOOD ALTERED
     Dosage: 200 MG, 2-3 CAPS AT NIGHT
     Dates: start: 20051201, end: 20060110

REACTIONS (2)
  - PLATELET COUNT DECREASED [None]
  - WHITE BLOOD CELL COUNT DECREASED [None]
